FAERS Safety Report 24659717 (Version 1)
Quarter: 2024Q4

REPORT INFORMATION
  Report Type: Report from Study
  Country: BG (occurrence: BG)
  Receive Date: 20241125
  Receipt Date: 20241125
  Transmission Date: 20250115
  Serious: Yes (Other)
  Sender: ABBVIE
  Company Number: BG-ABBVIE-6018482

PATIENT
  Age: 73 Year
  Sex: Female

DRUGS (1)
  1. RINVOQ [Suspect]
     Active Substance: UPADACITINIB
     Indication: Rheumatoid arthritis
     Route: 048
     Dates: start: 202306

REACTIONS (4)
  - Cardiomyopathy [Unknown]
  - Chest discomfort [Unknown]
  - Chest pain [Unknown]
  - Extrasystoles [Unknown]
